FAERS Safety Report 8476409-6 (Version None)
Quarter: 2012Q2

REPORT INFORMATION
  Report Type: 
  Country: None (occurrence: None)
  Receive Date: 20120628
  Receipt Date: 20120625
  Transmission Date: 20120825
  Serious: Yes (Death, Disabling)
  Sender: FDA-Public Use
  Company Number: JP-BAYER-2011-075884

PATIENT
  Age: 71 Year
  Sex: Male

DRUGS (2)
  1. NEXAVAR [Suspect]
     Indication: HEPATIC NEOPLASM MALIGNANT
     Dosage: DAILY DOSE 400 MG
     Route: 048
     Dates: start: 20110608, end: 20120111
  2. NEXAVAR [Suspect]
     Dosage: UNK
     Route: 048
     Dates: end: 20120111

REACTIONS (4)
  - HEPATIC FAILURE [None]
  - PALMAR-PLANTAR ERYTHRODYSAESTHESIA SYNDROME [None]
  - HEPATIC NEOPLASM MALIGNANT [None]
  - ALOPECIA [None]
